FAERS Safety Report 9119271 (Version 2)
Quarter: 2013Q2

REPORT INFORMATION
  Report Type: Spontaneous
  Country: CL (occurrence: None)
  Receive Date: 20130130
  Receipt Date: 20130412
  Transmission Date: 20140414
  Serious: Yes (Disabling)
  Sender: FDA-Public Use
  Company Number: ENTC2013-0029

PATIENT
  Age: 86 Year
  Sex: Male
  Weight: 40 kg

DRUGS (3)
  1. STALEVO (LEVODOPA, CARBIDOPA, ENTACAPONE) [Suspect]
     Indication: PARKINSON^S DISEASE
     Route: 048
  2. DILATREND [Concomitant]
  3. AMLODIPINE [Concomitant]

REACTIONS (7)
  - Eschar [None]
  - Weight decreased [None]
  - Malaise [None]
  - Bedridden [None]
  - Parkinson^s disease [None]
  - Disease progression [None]
  - Dementia Alzheimer^s type [None]
